FAERS Safety Report 25849294 (Version 1)
Quarter: 2025Q3

REPORT INFORMATION
  Report Type: Other
  Country: JP (occurrence: JP)
  Receive Date: 20250925
  Receipt Date: 20250925
  Transmission Date: 20251021
  Serious: Yes (Life-Threatening, Hospitalization, Other)
  Sender: BRECKENRIDGE PHARMACEUTICAL, INC.
  Company Number: JP-Breckenridge Pharmaceutical, Inc.-2185337

PATIENT
  Age: 87 Year
  Sex: Male

DRUGS (5)
  1. APIXABAN [Suspect]
     Active Substance: APIXABAN
     Indication: Atrial fibrillation
  2. APIXABAN [Suspect]
     Active Substance: APIXABAN
     Indication: Embolic stroke
  3. LIMAPROST [Suspect]
     Active Substance: LIMAPROST
  4. DEXAMETHASONE [Concomitant]
     Active Substance: DEXAMETHASONE
  5. REMDESIVIR [Concomitant]
     Active Substance: REMDESIVIR

REACTIONS (2)
  - Haemorrhagic cholecystitis [Recovered/Resolved]
  - Haemoperitoneum [Recovered/Resolved]
